FAERS Safety Report 17867473 (Version 1)
Quarter: 2020Q2

REPORT INFORMATION
  Report Type: Report from Study
  Country: US (occurrence: US)
  Receive Date: 20200605
  Receipt Date: 20200605
  Transmission Date: 20200714
  Serious: Yes (Death)
  Sender: FDA-Public Use
  Company Number: US-PFIZER INC-2020219965

PATIENT

DRUGS (46)
  1. CYTARABINE. [Suspect]
     Active Substance: CYTARABINE
     Dosage: 3000 MG/M2, Q12 HRS FOR 4 DOSE, IN WEEKS 6 AND 7
     Route: 042
  2. CYTARABINE. [Suspect]
     Active Substance: CYTARABINE
     Dosage: 3000 MG/M2 IV Q12 HRS FOR 4 DOSES, IN WEEKS 33 AND 51;
     Route: 042
  3. METHOTREXATE SODIUM. [Suspect]
     Active Substance: METHOTREXATE SODIUM
     Dosage: UNK, IN WEEK 38
     Route: 037
  4. DEXAMETHASONE. [Suspect]
     Active Substance: DEXAMETHASONE
     Indication: ACUTE LYMPHOCYTIC LEUKAEMIA RECURRENT
     Dosage: 10 MG/M2/DAY PO DIVIDED (BID), DAYS 1-7, 15-21 (IN WEEKS 28 AND 30);
     Route: 048
  5. CYTARABINE. [Suspect]
     Active Substance: CYTARABINE
     Dosage: UNK, IN WEEKS 17, 20, 23
     Route: 037
  6. G-CSF [Suspect]
     Active Substance: GRANULOCYTE COLONY-STIMULATING FACTOR NOS
     Dosage: 5 MCG/KG/DAY SUBQ/IV DAILY, IN WEEKS 34, 52;
  7. PEGASPARGASE [Suspect]
     Active Substance: PEGASPARGASE
     Indication: ACUTE LYMPHOCYTIC LEUKAEMIA RECURRENT
     Dosage: 2500 UNITS/M2, WEEKS 1-4
     Route: 030
  8. ETOPOSIDE. [Suspect]
     Active Substance: ETOPOSIDE
     Indication: ACUTE LYMPHOCYTIC LEUKAEMIA RECURRENT
     Dosage: 100 MG/M2/DAY IV FOR 5 DAYS IN WEEK 11
     Route: 042
  9. ETOPOSIDE. [Suspect]
     Active Substance: ETOPOSIDE
     Dosage: 300 MG/M2 IV, IN WEEKS 37, 55;
     Route: 042
  10. LEUCOVORIN. [Suspect]
     Active Substance: LEUCOVORIN
     Dosage: 15 MG/M2 IV/PO Q6 HRS FOR 3 DOSES AT MINIMUM STARTING AT HOUR 42, IN WEEKS 36, 54;
  11. VINCRISTINE SULFATE. [Suspect]
     Active Substance: VINCRISTINE SULFATE
     Dosage: UNKNOWN DOSE (ARM A OR B), IV, IN WEEKS 18, 21, 24, 27;
     Route: 042
  12. DOXORUBICIN HCL [Suspect]
     Active Substance: DOXORUBICIN HYDROCHLORIDE
     Indication: ACUTE LYMPHOCYTIC LEUKAEMIA RECURRENT
     Dosage: 60 MG/M2, IN WEEK 1
     Route: 042
  13. DOXORUBICIN HCL [Suspect]
     Active Substance: DOXORUBICIN HYDROCHLORIDE
     Dosage: 25 MG/M2 IV, IN WEEKS 28, 29, 30;
     Route: 042
  14. METHOTREXATE SODIUM. [Suspect]
     Active Substance: METHOTREXATE SODIUM
     Dosage: 5 GRAMS/M2 IV OVER 24 HOURS IN WEEK 14
     Route: 042
  15. METHOTREXATE SODIUM. [Suspect]
     Active Substance: METHOTREXATE SODIUM
     Dosage: 5 GRAMS/M2 IV OVER 24 HOURS, IN WEEKS 18, 21, 24, 27;
     Route: 042
  16. HYDROCORTISONE ACETATE. [Suspect]
     Active Substance: HYDROCORTISONE ACETATE
     Dosage: UNK, IN WEEK 38
     Route: 037
  17. METHOTREXATE SODIUM. [Suspect]
     Active Substance: METHOTREXATE SODIUM
     Dosage: 5 GRAMS/M2 IV OVER 24 HOURS, IN WEEKS 36, 54;
     Route: 042
  18. G-CSF [Suspect]
     Active Substance: GRANULOCYTE COLONY-STIMULATING FACTOR NOS
     Dosage: 5 UG/KG, SUBCUTANEOUS (SUBQ) OR IV, DAILY IN WEEK 11
  19. ETOPOSIDE. [Suspect]
     Active Substance: ETOPOSIDE
     Dosage: 300 MG/M2 IV, IN WEEKS 16, 19, 22, 25;
     Route: 042
  20. METHOTREXATE SODIUM. [Suspect]
     Active Substance: METHOTREXATE SODIUM
     Dosage: UNK, IN WEEK 11
     Route: 037
  21. METHOTREXATE SODIUM. [Suspect]
     Active Substance: METHOTREXATE SODIUM
     Dosage: UNK, IN WEEKS 17, 20, 23
     Route: 037
  22. METHOTREXATE SODIUM. [Suspect]
     Active Substance: METHOTREXATE SODIUM
     Dosage: UNK, IN WEEKS 28, 31
     Route: 037
  23. HYDROCORTISONE ACETATE. [Suspect]
     Active Substance: HYDROCORTISONE ACETATE
     Indication: ACUTE LYMPHOCYTIC LEUKAEMIA RECURRENT
     Dosage: UNK, DAYS 1, 8, 15, 22, 29
     Route: 037
  24. CYCLOPHOSPHAMIDE. [Suspect]
     Active Substance: CYCLOPHOSPHAMIDE
     Dosage: 500 MG/M2 IV, IN WEEKS 37, 55;
     Route: 042
  25. LEUCOVORIN. [Suspect]
     Active Substance: LEUCOVORIN
     Indication: ACUTE LYMPHOCYTIC LEUKAEMIA RECURRENT
     Dosage: 15 MG/M2 IV/PO EVERY (Q) 6 HOURS (HRS) FOR 3 DOSES AT MINIMUM, STARTING AT HOUR 42 IN WEEK 11
  26. LEUCOVORIN. [Suspect]
     Active Substance: LEUCOVORIN
     Dosage: 15 MG/M2 IV/PO Q6 HRS FOR 3 DOSES AT MINIMUM STARTING AT HOUR 42, IN WEEKS 18, 21, 24, 27;
  27. CYTARABINE. [Suspect]
     Active Substance: CYTARABINE
     Dosage: UNK, IN WEEKS 28, 31
     Route: 037
  28. METHOTREXATE SODIUM. [Suspect]
     Active Substance: METHOTREXATE SODIUM
     Indication: ACUTE LYMPHOCYTIC LEUKAEMIA RECURRENT
     Dosage: UNK, DAYS 1, 8, 15, 22, 29
     Route: 037
  29. HYDROCORTISONE ACETATE. [Suspect]
     Active Substance: HYDROCORTISONE ACETATE
     Dosage: UNK, IN WEEK 11
     Route: 037
  30. HYDROCORTISONE ACETATE. [Suspect]
     Active Substance: HYDROCORTISONE ACETATE
     Dosage: UNK, IN WEEKS 28, 31
     Route: 037
  31. G-CSF [Suspect]
     Active Substance: GRANULOCYTE COLONY-STIMULATING FACTOR NOS
     Indication: ACUTE LYMPHOCYTIC LEUKAEMIA RECURRENT
     Dosage: 5 UG/KG, SUBQ/IV DAILY IN WEEK 7
  32. PEGASPARGASE [Suspect]
     Active Substance: PEGASPARGASE
     Dosage: 2500 INTERNATIONAL UNITS/M2 IM, IN WEEKS 28, 30;
     Route: 030
  33. VINCRISTINE SULFATE. [Suspect]
     Active Substance: VINCRISTINE SULFATE
     Indication: ACUTE LYMPHOCYTIC LEUKAEMIA RECURRENT
     Dosage: UNKNOWN DOSE (ARM A OR B), CYCLIC (WEEKS 1-4)
     Route: 042
  34. CYTARABINE. [Suspect]
     Active Substance: CYTARABINE
     Dosage: UNK, IN WEEK 38
     Route: 037
  35. HYDROCORTISONE ACETATE. [Suspect]
     Active Substance: HYDROCORTISONE ACETATE
     Dosage: UNK, IN WEEKS 17, 20, 23
     Route: 037
  36. L-ASPARAGINASE [Suspect]
     Active Substance: ASPARAGINASE
     Indication: ACUTE LYMPHOCYTIC LEUKAEMIA RECURRENT
     Dosage: 6000 INTERNATIONAL UNITS/M^2 IM, IN WEEKS 6 AND 7
     Route: 030
  37. PREDNISONE. [Suspect]
     Active Substance: PREDNISONE
     Indication: ACUTE LYMPHOCYTIC LEUKAEMIA RECURRENT
     Dosage: 40 MG/M2/DAY DIVIDED THREE TIMES DAILY (TID) FROM WEEK 1 TO WEEK 4
     Route: 048
  38. CYCLOPHOSPHAMIDE. [Suspect]
     Active Substance: CYCLOPHOSPHAMIDE
     Indication: ACUTE LYMPHOCYTIC LEUKAEMIA RECURRENT
     Dosage: 440 MG/M2/DAY IV FOR 5 DAYS IN WEEK 11
     Route: 042
  39. CYCLOPHOSPHAMIDE. [Suspect]
     Active Substance: CYCLOPHOSPHAMIDE
     Dosage: 500 MG/M2 IV, IN WEEKS 16, 19, 22, 25;
     Route: 042
  40. MERCAPTOPURINE. [Suspect]
     Active Substance: MERCAPTOPURINE
     Dosage: 50 MG/M2 PO DAILY FOR 5 DOSES, IN WEEKS 36 AND 54
     Route: 048
  41. VINCRISTINE SULFATE. [Suspect]
     Active Substance: VINCRISTINE SULFATE
     Dosage: UNKNOWN DOSE (ARM A OR B) IV, IN WEEKS 28, 29, 30;
     Route: 042
  42. VINCRISTINE SULFATE. [Suspect]
     Active Substance: VINCRISTINE SULFATE
     Dosage: UNKNOWN DOSE (ARM A OR B) IV, IN WEEKS 36, 37, 54, 55;
     Route: 042
  43. CYTARABINE. [Suspect]
     Active Substance: CYTARABINE
     Dosage: UNK, IN WEEK 11
     Route: 037
  44. PEGASPARGASE [Suspect]
     Active Substance: PEGASPARGASE
     Dosage: 2500 INTERNATIONAL UNITS/M2 IM, IN WEEKS 33, 52;
     Route: 030
  45. MERCAPTOPURINE. [Suspect]
     Active Substance: MERCAPTOPURINE
     Indication: ACUTE LYMPHOCYTIC LEUKAEMIA RECURRENT
     Dosage: 50 MG/M2, DAILY FOR 5 DAYS, IN WEEKS 18, 21, 24, 27
     Route: 048
  46. CYTARABINE. [Suspect]
     Active Substance: CYTARABINE
     Indication: ACUTE LYMPHOCYTIC LEUKAEMIA RECURRENT
     Dosage: UNK, DAYS 1, 8, 15, 22, 29
     Route: 037

REACTIONS (1)
  - Pseudomonas infection [Fatal]
